FAERS Safety Report 5840057-4 (Version None)
Quarter: 2008Q3

REPORT INFORMATION
  Report Type: 
  Country: None (occurrence: None)
  Receive Date: 20080811
  Receipt Date: 20080730
  Transmission Date: 20090109
  Serious: No
  Sender: FDA-Public Use
  Company Number: DE-EISAI MEDIAL RESEARCH-E3810-01957-SPO-DE

PATIENT
  Sex: Female
  Weight: 75 kg

DRUGS (14)
  1. RABEPRAZOLE SODIUM [Suspect]
     Indication: GASTRITIS
     Route: 048
     Dates: start: 20070201, end: 20080501
  2. VENORUTON INTENS [Concomitant]
     Route: 048
  3. REPARIL [Concomitant]
     Route: 048
  4. TEBONIN INTENS [Concomitant]
     Route: 048
  5. MAGNESIUM SULFATE [Concomitant]
     Route: 048
  6. MULTIVITAMIN [Concomitant]
     Route: 048
  7. KWAI FORTE [Concomitant]
     Route: 048
  8. TRIAMTEREN HCT [Concomitant]
     Route: 048
  9. VALORON N RETARD [Concomitant]
     Route: 048
  10. METOPROLOL SUCCINATE [Concomitant]
     Route: 048
  11. ACTONEL AND VITAMIN D [Concomitant]
     Route: 048
  12. TIMOLOL MALEATE [Concomitant]
  13. IBEROGAST [Concomitant]
     Route: 048
  14. SORTIS [Concomitant]
     Route: 048

REACTIONS (6)
  - DEPRESSION [None]
  - DIARRHOEA [None]
  - DIZZINESS [None]
  - MACULAR DEGENERATION [None]
  - MYALGIA [None]
  - NAUSEA [None]
